FAERS Safety Report 5847337-7 (Version None)
Quarter: 2008Q3

REPORT INFORMATION
  Report Type: 
  Country: None (occurrence: None)
  Receive Date: 20080731
  Receipt Date: 20080519
  Transmission Date: 20090109
  Serious: No
  Sender: FDA-Public Use
  Company Number: US200805004362

PATIENT
  Age: 73 Year
  Sex: Female

DRUGS (2)
  1. BYETTA [Suspect]
     Dosage: 10 UG, SUBCUTANEOUS
     Route: 058
     Dates: start: 20050701
  2. EXENATIDE 10MCG PEN, DISPOSABLE DEVICE(EXENATIDE PEN (10MCG) PEN DISPO [Concomitant]

REACTIONS (1)
  - HAEMATOCRIT ABNORMAL [None]
